FAERS Safety Report 7001804-1 (Version None)
Quarter: 2010Q3

REPORT INFORMATION
  Report Type: 
  Country: None (occurrence: None)
  Receive Date: 20100920
  Receipt Date: 20100330
  Transmission Date: 20110219
  Serious: Yes (Other)
  Sender: FDA-Public Use
  Company Number: US-ASTRAZENECA-2006UW10074

PATIENT
  Age: 449 Month
  Sex: Female

DRUGS (8)
  1. SEROQUEL [Suspect]
     Route: 048
  2. RISPERDAL [Suspect]
     Indication: DEPRESSION
     Route: 065
     Dates: start: 20000101, end: 20040701
  3. RISPERDAL [Suspect]
     Indication: SLEEP DISORDER
     Route: 065
     Dates: start: 20000101, end: 20040701
  4. DEPAKOTE [Concomitant]
     Dates: start: 20001211
  5. ZYPREXA [Concomitant]
     Dosage: 5 MG IN THE MORNING AND 20 MG AT NIGHT
     Dates: start: 20001211
  6. CELEXA [Concomitant]
     Dates: start: 20001211
  7. TRAZODONE HCL [Concomitant]
     Dates: start: 20001211
  8. ZOLOFT [Concomitant]
     Dates: start: 20000929

REACTIONS (1)
  - PANCREATITIS [None]
